FAERS Safety Report 23206290 (Version 1)
Quarter: 2023Q4

REPORT INFORMATION
  Report Type: Spontaneous
  Country: CN (occurrence: None)
  Receive Date: 20231120
  Receipt Date: 20231120
  Transmission Date: 20240109
  Serious: Yes (Life-Threatening)
  Sender: FDA-Public Use
  Company Number: CN-ROCHE-3460782

PATIENT
  Age: 58 Year
  Sex: Female

DRUGS (3)
  1. AVASTIN [Suspect]
     Active Substance: BEVACIZUMAB
     Indication: Breast cancer
     Dosage: D19
     Route: 041
     Dates: start: 20231027, end: 20231027
  2. CISPLATIN [Suspect]
     Active Substance: CISPLATIN
     Indication: Breast cancer
     Dosage: D1, D4, D8, D12
     Route: 065
     Dates: start: 20231009, end: 20231020
  3. CISPLATIN [Suspect]
     Active Substance: CISPLATIN
     Dosage: D19
     Route: 065
     Dates: start: 20231027, end: 20231027

REACTIONS (2)
  - Platelet count decreased [Recovering/Resolving]
  - Off label use [Unknown]

NARRATIVE: CASE EVENT DATE: 20231106
